FAERS Safety Report 4632017-6 (Version None)
Quarter: 2005Q2

REPORT INFORMATION
  Report Type: 
  Country: None (occurrence: None)
  Receive Date: 20050325
  Receipt Date: 20050104
  Transmission Date: 20051028
  Serious: No
  Sender: FDA-Public Use
  Company Number: USA041183605

PATIENT
  Age: 70 Year
  Sex: Female
  Weight: 45 kg

DRUGS (10)
  1. FORTEO [Suspect]
     Dosage: 20 UG EVERY OTHER DAY
  2. CALCIUM AND VITAMIN D [Concomitant]
  3. LIPITOR [Concomitant]
  4. ALLEGRA [Concomitant]
  5. DUONEB [Concomitant]
  6. NORVASC [Concomitant]
  7. ZEBETA [Concomitant]
  8. SEREVENT [Concomitant]
  9. ACCUPRIL [Concomitant]
  10. UNIPHYL [Concomitant]

REACTIONS (1)
  - BLOOD CALCIUM INCREASED [None]
